FAERS Safety Report 4681676-0 (Version None)
Quarter: 2005Q2

REPORT INFORMATION
  Report Type: 
  Country: None (occurrence: None)
  Receive Date: 20050603
  Receipt Date: 20050303
  Transmission Date: 20051028
  Serious: Yes (Hospitalization)
  Sender: FDA-Public Use
  Company Number: US-MERCK-0503USA00825

PATIENT
  Age: 48 Year
  Sex: Male
  Weight: 96 kg

DRUGS (6)
  1. VIOXX [Suspect]
     Indication: ARTHRITIS
     Route: 048
     Dates: start: 19990101, end: 20041001
  2. VIOXX [Suspect]
     Route: 048
     Dates: start: 20010530, end: 20040901
  3. VIOXX [Suspect]
     Route: 048
     Dates: start: 20010525, end: 20010530
  4. VIOXX [Suspect]
     Indication: ARTHRALGIA
     Route: 048
     Dates: start: 19990101, end: 20041001
  5. VIOXX [Suspect]
     Route: 048
     Dates: start: 20010530, end: 20040901
  6. VIOXX [Suspect]
     Route: 048
     Dates: start: 20010525, end: 20010530

REACTIONS (9)
  - ACUTE MYOCARDIAL INFARCTION [None]
  - ANXIETY [None]
  - CORONARY ARTERY DISEASE [None]
  - DEPRESSION [None]
  - DIZZINESS POSTURAL [None]
  - EMOTIONAL DISTRESS [None]
  - HYPERCHOLESTEROLAEMIA [None]
  - SHOULDER PAIN [None]
  - VENTRICULAR DYSFUNCTION [None]
